FAERS Safety Report 5173168-X (Version None)
Quarter: 2006Q4

REPORT INFORMATION
  Report Type: 
  Country: None (occurrence: None)
  Receive Date: 20061208
  Receipt Date: 20061208
  Transmission Date: 20070319
  Serious: Yes (Other)
  Sender: FDA-Public Use
  Company Number: None

PATIENT
  Sex: Male
  Weight: 61.2356 kg

DRUGS (27)
  1. NAMENDA [Suspect]
     Indication: DEMENTIA
     Dosage: 5 MG BID PO
     Route: 048
  2. ABILIFY [Concomitant]
  3. ASTELIN [Concomitant]
  4. BUMEX [Concomitant]
  5. CLARINEX [Concomitant]
  6. DEPAKOTE [Concomitant]
  7. EXELON [Concomitant]
  8. FLONASE [Concomitant]
  9. HOUSE SUPPOSITORY [Concomitant]
  10. LACTULOSE [Concomitant]
  11. LITHIUM CARBONATE [Concomitant]
  12. LOVENOX [Concomitant]
  13. METAMUCIL [Concomitant]
  14. NAMENDA [Concomitant]
  15. ROBITUSSIN [Concomitant]
  16. SEROQUEL [Concomitant]
  17. TYLENOL [Concomitant]
  18. VIT E [Concomitant]
  19. VITAMIN D [Concomitant]
  20. XALATAN [Concomitant]
  21. ZANTAC [Concomitant]
  22. D5 1/2 NS [Concomitant]
  23. NEXIUM [Concomitant]
  24. PEPCID [Concomitant]
  25. HUMIBID LA [Concomitant]
  26. HALDOL [Concomitant]
  27. HYDROCHLOROTHIAZIDE [Concomitant]

REACTIONS (3)
  - BLOOD SODIUM INCREASED [None]
  - HYPONATRAEMIA [None]
  - PANCREATITIS [None]
